FAERS Safety Report 4803212-8 (Version None)
Quarter: 2005Q4

REPORT INFORMATION
  Report Type: 
  Country: None (occurrence: None)
  Receive Date: 20051013
  Receipt Date: 20050927
  Transmission Date: 20060501
  Serious: Yes (Other)
  Sender: FDA-Public Use
  Company Number: USA0509109262

PATIENT
  Age: 61 Year
  Sex: Female

DRUGS (6)
  1. HUMULIN 70/30 [Suspect]
     Indication: DIABETES MELLITUS
     Dosage: 280 U DAY
     Dates: start: 19840101
  2. AVANDIA [Concomitant]
  3. GLUCOPHAGE [Concomitant]
  4. CELEBREX [Concomitant]
  5. ACETAMINOPHEN W/ PROPOXYPHENE HCL [Concomitant]
  6. ARICEPT [Concomitant]

REACTIONS (10)
  - ARTHRITIS [None]
  - BACK PAIN [None]
  - BLOOD GLUCOSE INCREASED [None]
  - DEMENTIA ALZHEIMER'S TYPE [None]
  - FALL [None]
  - PAIN IN EXTREMITY [None]
  - PHARMACEUTICAL PRODUCT COMPLAINT [None]
  - RENAL DISORDER [None]
  - SPONDYLITIS [None]
  - UPPER LIMB FRACTURE [None]
